FAERS Safety Report 7945251-4 (Version None)
Quarter: 2011Q4

REPORT INFORMATION
  Report Type: 
  Country: None (occurrence: None)
  Receive Date: 20111129
  Receipt Date: 20110912
  Transmission Date: 20120403
  Serious: No
  Sender: FDA-Public Use
  Company Number: US-GLAXOSMITHKLINE-A0944173A

PATIENT
  Age: 70 Year
  Sex: Female

DRUGS (7)
  1. ALBUTEROL [Concomitant]
  2. FLOVENT [Suspect]
     Indication: CHRONIC OBSTRUCTIVE PULMONARY DISEASE
     Dosage: 1PUFF TWICE PER DAY
     Route: 055
     Dates: start: 20110905
  3. VENTOLIN [Suspect]
     Indication: CHRONIC OBSTRUCTIVE PULMONARY DISEASE
     Dosage: 2PUFF FOUR TIMES PER DAY
     Route: 055
     Dates: start: 20110830
  4. BROVANA [Concomitant]
  5. SPIRIVA [Concomitant]
  6. ATROVENT [Concomitant]
  7. VENTOLIN [Concomitant]

REACTIONS (2)
  - OEDEMA PERIPHERAL [None]
  - JOINT SWELLING [None]
